FAERS Safety Report 11061309 (Version 1)
Quarter: 2015Q2

REPORT INFORMATION
  Report Type: Spontaneous
  Country: US (occurrence: None)
  Receive Date: 20150423
  Receipt Date: 20150423
  Transmission Date: 20150821
  Serious: Yes (Life-Threatening, Hospitalization)
  Sender: FDA-Public Use
  Company Number: None

PATIENT
  Age: 66 Year
  Sex: Female
  Weight: 90.7 kg

DRUGS (1)
  1. XARELTO [Suspect]
     Active Substance: RIVAROXABAN
     Indication: ATRIAL FIBRILLATION
     Dosage: 1 TABLET  QD  ORAL
     Route: 048
     Dates: start: 20140501, end: 20150312

REACTIONS (3)
  - Muscular weakness [None]
  - Cerebrovascular accident [None]
  - Cerebral artery thrombosis [None]

NARRATIVE: CASE EVENT DATE: 20150311
